FAERS Safety Report 6945821-6 (Version None)
Quarter: 2010Q3

REPORT INFORMATION
  Report Type: 
  Country: None (occurrence: None)
  Receive Date: 20100827
  Receipt Date: 20100823
  Transmission Date: 20110219
  Serious: Yes (Hospitalization)
  Sender: FDA-Public Use
  Company Number: US-GENENTECH-305053

PATIENT
  Sex: Female
  Weight: 45.5 kg

DRUGS (2)
  1. LUCENTIS [Suspect]
     Indication: MACULAR DEGENERATION
     Dosage: UNK
     Route: 031
     Dates: start: 20080201
  2. SYNTHROID [Concomitant]
     Indication: PRODUCT USED FOR UNKNOWN INDICATION
     Dosage: 88 A?G, QD
     Route: 048

REACTIONS (8)
  - ABDOMINAL PAIN [None]
  - EYE DISORDER [None]
  - HERPES ZOSTER [None]
  - HYPONATRAEMIA [None]
  - NAUSEA [None]
  - RENAL INFARCT [None]
  - THROMBOSIS [None]
  - VOMITING [None]
